FAERS Safety Report 16973321 (Version 2)
Quarter: 2019Q4

REPORT INFORMATION
  Report Type: Spontaneous
  Country: JP (occurrence: JP)
  Receive Date: 20191030
  Receipt Date: 20191122
  Transmission Date: 20200122
  Serious: Yes (Death, Other)
  Sender: FDA-Public Use
  Company Number: JP-AMGEN-JPNSP2019148339

PATIENT
  Age: 69 Year
  Sex: Male

DRUGS (9)
  1. ALIMTA [Concomitant]
     Active Substance: PEMETREXED DISODIUM
     Indication: NEUTROPHIL COUNT DECREASED
     Dosage: UNK, QD
     Route: 065
     Dates: start: 20141016, end: 20150205
  2. RANMARK [Suspect]
     Active Substance: DENOSUMAB
     Indication: METASTASES TO BONE
     Dosage: 120 MILLIGRAM, Q4WK
     Route: 058
     Dates: start: 20140912, end: 20160712
  3. AVASTIN [Suspect]
     Active Substance: BEVACIZUMAB
     Indication: PRODUCT USED FOR UNKNOWN INDICATION
     Dosage: UNK, QD
     Route: 042
     Dates: start: 20141016, end: 20150813
  4. CISPLATIN. [Concomitant]
     Active Substance: CISPLATIN
     Dosage: UNK, QD
     Route: 065
     Dates: start: 20141016, end: 20150205
  5. TAXOTERE [Concomitant]
     Active Substance: DOCETAXEL
     Dosage: UNK, QD
     Route: 065
     Dates: start: 20150903, end: 20151105
  6. CALSED [Concomitant]
     Active Substance: AMRUBICIN HYDROCHLORIDE
     Indication: LUNG NEOPLASM MALIGNANT
     Dosage: UNK
     Route: 065
     Dates: start: 20151202, end: 20160401
  7. OPDIVO [Concomitant]
     Active Substance: NIVOLUMAB
     Dosage: UNK
     Route: 065
     Dates: start: 20160414, end: 20170307
  8. CARBOPLATIN. [Concomitant]
     Active Substance: CARBOPLATIN
     Dosage: UNK UNK, QD
     Route: 065
     Dates: start: 20150903, end: 20151105
  9. KEYTRUDA [Concomitant]
     Active Substance: PEMBROLIZUMAB
     Dosage: UNK
     Route: 065
     Dates: start: 20170403, end: 20170403

REACTIONS (3)
  - Death [Fatal]
  - Osteonecrosis of jaw [Not Recovered/Not Resolved]
  - Neutrophil count decreased [Recovered/Resolved]

NARRATIVE: CASE EVENT DATE: 201410
